FAERS Safety Report 23736643 (Version 2)
Quarter: 2024Q3

REPORT INFORMATION
  Report Type: Spontaneous
  Country: GB (occurrence: GB)
  Receive Date: 20240412
  Receipt Date: 20240905
  Transmission Date: 20241017
  Serious: No
  Sender: PFIZER
  Company Number: GB-PFIZER INC-202400076135

PATIENT
  Sex: Male

DRUGS (1)
  1. GENOTROPIN [Suspect]
     Active Substance: SOMATROPIN
     Indication: Hypopituitarism
     Dosage: UNK

REACTIONS (4)
  - Device issue [Unknown]
  - Device information output issue [Unknown]
  - Device physical property issue [Unknown]
  - Device use error [Unknown]
